FAERS Safety Report 5523164-5 (Version None)
Quarter: 2007Q4

REPORT INFORMATION
  Report Type: 
  Country: None (occurrence: None)
  Receive Date: 20071116
  Receipt Date: 20071109
  Transmission Date: 20080405
  Serious: Yes (Other)
  Sender: FDA-Public Use
  Company Number: 2007334878

PATIENT
  Age: 15 Year
  Sex: Male

DRUGS (1)
  1. LISTERINE [Suspect]
     Indication: DRUG ABUSE
     Dosage: 1./2 BOTTLE; ORAL
     Route: 048

REACTIONS (1)
  - INTENTIONAL DRUG MISUSE [None]
